FAERS Safety Report 6519172-8 (Version None)
Quarter: 2009Q4

REPORT INFORMATION
  Report Type: 
  Country: None (occurrence: None)
  Receive Date: 20091224
  Receipt Date: 20091224
  Transmission Date: 20100525
  Serious: Yes (Other)
  Sender: FDA-Public Use
  Company Number: None

PATIENT
  Age: 59 Year
  Sex: Female
  Weight: 58.9676 kg

DRUGS (1)
  1. ALENDRONATE SODIUM [Suspect]
     Indication: OSTEOPENIA
     Dosage: 1 TABLET ONCE A WEEK PO
     Route: 048
     Dates: start: 20081108, end: 20091008

REACTIONS (3)
  - MOVEMENT DISORDER [None]
  - MUSCULAR WEAKNESS [None]
  - MYALGIA [None]
